FAERS Safety Report 13690496 (Version 4)
Quarter: 2019Q1

REPORT INFORMATION
  Report Type: Spontaneous
  Country: JP (occurrence: JP)
  Receive Date: 20170626
  Receipt Date: 20190201
  Transmission Date: 20190417
  Serious: Yes (Death, Hospitalization)
  Sender: FDA-Public Use
  Company Number: PHJP2017JP017826

PATIENT
  Age: 89 Year
  Sex: Female
  Weight: 51 kg

DRUGS (6)
  1. CANDESARTAN TABLET [Suspect]
     Active Substance: CANDESARTAN
     Indication: HYPERTENSION
     Dosage: 2 MG, UNK
     Route: 048
     Dates: end: 20160628
  2. NEORAL [Suspect]
     Active Substance: CYCLOSPORINE
     Dosage: UNK
     Route: 065
     Dates: end: 20160715
  3. AMLODIPINE [Suspect]
     Active Substance: AMLODIPINE BESYLATE
     Indication: HYPERTENSION
     Dosage: 5 MG, QD
     Route: 048
  4. NEORAL [Suspect]
     Active Substance: CYCLOSPORINE
     Indication: PEMPHIGOID
     Dosage: 150 MG, UNK
     Route: 065
     Dates: start: 20160621
  5. EQUA TAB [Suspect]
     Active Substance: VILDAGLIPTIN
     Indication: TYPE 2 DIABETES MELLITUS
     Dosage: 50 MG, BID
     Route: 048
     Dates: start: 201308, end: 20160509
  6. EQUA TAB [Suspect]
     Active Substance: VILDAGLIPTIN
     Dosage: 50 MG, QD
     Route: 048
     Dates: end: 20160617

REACTIONS (7)
  - Blister [Unknown]
  - Inflammation [Unknown]
  - Infection [Unknown]
  - Blister rupture [Unknown]
  - Death [Fatal]
  - Pemphigoid [Recovering/Resolving]
  - Erythema [Unknown]

NARRATIVE: CASE EVENT DATE: 20170506
